FAERS Safety Report 13818574 (Version 2)
Quarter: 2017Q3

REPORT INFORMATION
  Report Type: Report from Study
  Country: US (occurrence: US)
  Receive Date: 20170801
  Receipt Date: 20170927
  Transmission Date: 20171127
  Serious: Yes (Life-Threatening, Other)
  Sender: FDA-Public Use
  Company Number: PHEH2017US023203

PATIENT
  Age: 57 Year
  Sex: Female

DRUGS (1)
  1. COSENTYX [Suspect]
     Active Substance: SECUKINUMAB
     Indication: PRODUCT USED FOR UNKNOWN INDICATION
     Dosage: UNK
     Route: 058
     Dates: start: 20161001, end: 20161021

REACTIONS (4)
  - Suicidal ideation [Unknown]
  - Malaise [Unknown]
  - Neoplasm malignant [Unknown]
  - Depressed mood [Unknown]

NARRATIVE: CASE EVENT DATE: 201610
